FAERS Safety Report 18795165 (Version 1)
Quarter: 2021Q1

REPORT INFORMATION
  Report Type: Spontaneous
  Country: US (occurrence: US)
  Receive Date: 20210127
  Receipt Date: 20210127
  Transmission Date: 20210419
  Serious: No
  Sender: FDA-Public Use
  Company Number: US-TEVA-2021-US-1871622

PATIENT
  Sex: Female

DRUGS (2)
  1. CHLORDIAZEPOXIDE HYDROCHLORIDE. [Suspect]
     Active Substance: CHLORDIAZEPOXIDE HYDROCHLORIDE
     Indication: DEPRESSION
  2. CHLORDIAZEPOXIDE HYDROCHLORIDE. [Suspect]
     Active Substance: CHLORDIAZEPOXIDE HYDROCHLORIDE
     Indication: ANXIETY
     Dosage: 37 YEARS
     Route: 065

REACTIONS (4)
  - Anxiety [Unknown]
  - Dizziness [Unknown]
  - Drug ineffective [Unknown]
  - Product quality issue [Unknown]
